FAERS Safety Report 11108702 (Version 1)
Quarter: 2015Q2

REPORT INFORMATION
  Report Type: Spontaneous
  Country: US (occurrence: None)
  Receive Date: 20150511
  Receipt Date: 20150511
  Transmission Date: 20150821
  Serious: Yes (Hospitalization)
  Sender: FDA-Public Use
  Company Number: None

PATIENT

DRUGS (1)
  1. DEPAKOTE [Suspect]
     Active Substance: DIVALPROEX SODIUM
     Route: 048
     Dates: start: 1997, end: 2013

REACTIONS (5)
  - Vomiting [None]
  - Liver disorder [None]
  - Lung disorder [None]
  - Feeling hot [None]
  - Dizziness [None]

NARRATIVE: CASE EVENT DATE: 2013
